FAERS Safety Report 20629284 (Version 2)
Quarter: 2022Q2

REPORT INFORMATION
  Report Type: Spontaneous
  Country: AR (occurrence: AR)
  Receive Date: 20220323
  Receipt Date: 20220502
  Transmission Date: 20220720
  Serious: Yes (Other)
  Sender: FDA-Public Use
  Company Number: AR-PFIZER INC-202200425269

PATIENT
  Age: 76 Year
  Sex: Male

DRUGS (1)
  1. XELJANZ XR [Suspect]
     Active Substance: TOFACITINIB CITRATE
     Indication: Rheumatoid arthritis
     Dosage: 11 MG, 1X/DAY
     Dates: start: 20190311, end: 202110

REACTIONS (2)
  - Neoplasm prostate [Not Recovered/Not Resolved]
  - Intentional dose omission [Not Recovered/Not Resolved]

NARRATIVE: CASE EVENT DATE: 20211001
